FAERS Safety Report 6055882-7 (Version None)
Quarter: 2009Q1

REPORT INFORMATION
  Report Type: 
  Country: None (occurrence: None)
  Receive Date: 20090128
  Receipt Date: 20090121
  Transmission Date: 20090719
  Serious: No
  Sender: FDA-Public Use
  Company Number: US-B.I. PHARMACEUTICALS,INC./RIDGEFIELD-2008-BP-18245BP

PATIENT
  Sex: Female

DRUGS (2)
  1. SPIRIVA [Suspect]
     Indication: CHRONIC OBSTRUCTIVE PULMONARY DISEASE
     Dosage: 18MCG
     Route: 055
     Dates: start: 20080901, end: 20081201
  2. SPIRIVA [Suspect]
     Indication: EMPHYSEMA

REACTIONS (4)
  - DYSPHONIA [None]
  - SWOLLEN TONGUE [None]
  - TONGUE COATED [None]
  - TONGUE DISORDER [None]
